FAERS Safety Report 10960110 (Version 3)
Quarter: 2015Q2

REPORT INFORMATION
  Report Type: Spontaneous
  Country: PR (occurrence: None)
  Receive Date: 20150325
  Receipt Date: 20150409
  Transmission Date: 20150821
  Serious: Yes (Hospitalization)
  Sender: FDA-Public Use
  Company Number: KAD201503-000610

PATIENT
  Age: 66 Year
  Sex: Male
  Weight: 68.94 kg

DRUGS (2)
  1. RIBAVIRIN. [Suspect]
     Active Substance: RIBAVIRIN
     Indication: HEPATITIS C
     Route: 048
  2. VIEKIRA PAK [Suspect]
     Active Substance: DASABUVIR\OMBITASVIR\PARITAPREVIR\RITONAVIR
     Indication: HEPATITIS C
     Dosage: TABLET
     Route: 048
     Dates: start: 20150210, end: 20150310

REACTIONS (9)
  - Blood potassium decreased [None]
  - Decreased appetite [None]
  - Fatigue [None]
  - Renal impairment [None]
  - Insomnia [None]
  - Blood bilirubin increased [None]
  - Hepatic function abnormal [None]
  - Somnolence [None]
  - Haemoglobin decreased [None]

NARRATIVE: CASE EVENT DATE: 20150302
